FAERS Safety Report 14438486 (Version 1)
Quarter: 2018Q1

REPORT INFORMATION
  Report Type: Report from Study
  Country: US (occurrence: US)
  Receive Date: 20180125
  Receipt Date: 20180125
  Transmission Date: 20180509
  Serious: Yes (Other)
  Sender: FDA-Public Use
  Company Number: US-JNJFOC-20180129584

PATIENT
  Age: 74 Year
  Sex: Female

DRUGS (13)
  1. OMEPRAZOLE. [Concomitant]
     Active Substance: OMEPRAZOLE
  2. LEVOFLOXACIN. [Concomitant]
     Active Substance: LEVOFLOXACIN
  3. CALCIUM-CARBONAT [Concomitant]
  4. FERROUS SULFATE. [Concomitant]
     Active Substance: FERROUS SULFATE
  5. MAGNESIUM [Concomitant]
     Active Substance: MAGNESIUM
  6. VITAMIN D3 [Concomitant]
     Active Substance: CHOLECALCIFEROL
  7. HYOSCYAMINE SULFATE. [Concomitant]
     Active Substance: HYOSCYAMINE SULFATE
  8. OXYBUTYNIN CHLORIDE. [Concomitant]
     Active Substance: OXYBUTYNIN CHLORIDE
  9. VENTOLIN HFA [Concomitant]
     Active Substance: ALBUTEROL SULFATE
     Dosage: 108 MCG/ACT
  10. LEVOTHYROXINE SODIUM. [Concomitant]
     Active Substance: LEVOTHYROXINE SODIUM
  11. IMBRUVICA [Suspect]
     Active Substance: IBRUTINIB
     Indication: CHRONIC LYMPHOCYTIC LEUKAEMIA
     Route: 048
     Dates: start: 20170814
  12. DICLOFENAC SODIUM. [Concomitant]
     Active Substance: DICLOFENAC SODIUM
  13. NASONEX [Concomitant]
     Active Substance: MOMETASONE FUROATE
     Dosage: 50MCG/ACT, UNK
     Route: 045

REACTIONS (12)
  - Thyroxine increased [Unknown]
  - Tri-iodothyronine decreased [Unknown]
  - Bronchitis [Recovering/Resolving]
  - Weight decreased [Unknown]
  - Headache [Recovering/Resolving]
  - Head discomfort [Recovering/Resolving]
  - Cerebrovascular accident [Recovering/Resolving]
  - Alopecia [Not Recovered/Not Resolved]
  - Decreased appetite [Recovering/Resolving]
  - Fatigue [Recovering/Resolving]
  - Wound infection [Unknown]
  - Temperature intolerance [Unknown]

NARRATIVE: CASE EVENT DATE: 201712
